FAERS Safety Report 18355949 (Version 3)
Quarter: 2020Q4

REPORT INFORMATION
  Report Type: Spontaneous
  Country: DE (occurrence: DE)
  Receive Date: 20201007
  Receipt Date: 20201012
  Transmission Date: 20210114
  Serious: Yes (Other)
  Sender: FDA-Public Use
  Company Number: DE-BIOGEN-2020BI00931411

PATIENT
  Age: 43 Year
  Sex: Female

DRUGS (1)
  1. FAMPYRA [Suspect]
     Active Substance: DALFAMPRIDINE
     Indication: GAIT DISTURBANCE
     Route: 048
     Dates: start: 201909

REACTIONS (3)
  - Aneurysm [Not Recovered/Not Resolved]
  - Circulatory collapse [Recovered/Resolved]
  - Joint capsule rupture [Recovered/Resolved with Sequelae]

NARRATIVE: CASE EVENT DATE: 202006
